FAERS Safety Report 23823187 (Version 1)
Quarter: 2024Q2

REPORT INFORMATION
  Report Type: Spontaneous
  Country: CN (occurrence: CN)
  Receive Date: 20240507
  Receipt Date: 20240507
  Transmission Date: 20240715
  Serious: Yes (Other)
  Sender: FDA-Public Use
  Company Number: CN-CHEPLA-2024005602

PATIENT
  Age: 54 Year
  Sex: Female

DRUGS (32)
  1. CARBOPLATIN [Suspect]
     Active Substance: CARBOPLATIN
     Indication: HER2 positive breast cancer
     Dosage: 700MG D1 IV DRIP (IVGTT) FOR TWO CYCLES
     Route: 042
     Dates: start: 20200901, end: 202011
  2. CAPECITABINE [Suspect]
     Active Substance: CAPECITABINE
     Indication: Metastases to lymph nodes
     Dosage: 1000MG/M2 D1-D14 BID PO FOR TWO CYCLES?DAILY DOSE: 2000 MILLIGRAM/M?
     Route: 048
     Dates: start: 20210927, end: 202112
  3. CAPECITABINE [Suspect]
     Active Substance: CAPECITABINE
     Indication: HER2 positive breast cancer
     Dosage: 1000MG/M2 D1-D14 BID PO FOR TWO CYCLES?DAILY DOSE: 2000 MILLIGRAM/M?
     Route: 048
     Dates: start: 20210927, end: 202112
  4. CAPECITABINE [Suspect]
     Active Substance: CAPECITABINE
     Indication: Metastases to lymph nodes
     Dosage: 1000MG/M2 D1-D14 BID PO WITH FOUR CYCLES ?DAILY DOSE: 2000 MILLIGRAM/M?
     Route: 048
     Dates: start: 20211227, end: 202203
  5. CAPECITABINE [Suspect]
     Active Substance: CAPECITABINE
     Indication: HER2 positive breast cancer
     Dosage: 1000MG/M2 D1-D14 BID PO WITH FOUR CYCLES ?DAILY DOSE: 2000 MILLIGRAM/M?
     Route: 048
     Dates: start: 20211227, end: 202203
  6. PACLITAXEL [Suspect]
     Active Substance: PACLITAXEL
     Indication: HER2 positive breast cancer
     Dosage: 125 MG/M2 DI D8 IV DRIP (IVGTT) WITH 21 DAYS PER CYCLE
     Route: 042
     Dates: start: 20200714, end: 202008
  7. PACLITAXEL [Suspect]
     Active Substance: PACLITAXEL
     Indication: Metastases to lymph nodes
     Dosage: 125 MG/M2 DI D8 IV DRIP (IVGTT) WITH 21 DAYS PER CYCLE
     Route: 042
     Dates: start: 20200714, end: 202008
  8. PACLITAXEL [Suspect]
     Active Substance: PACLITAXEL
     Indication: HER2 positive breast cancer
     Dosage: 200MG D1, D8 INTRAVENOUS DRIP (IVGTT)
     Route: 042
     Dates: start: 20200901, end: 202011
  9. PACLITAXEL [Suspect]
     Active Substance: PACLITAXEL
     Indication: Metastases to lymph nodes
     Dosage: 200MG D1, D8 INTRAVENOUS DRIP (IVGTT)
     Route: 042
     Dates: start: 20200901, end: 202011
  10. PACLITAXEL [Suspect]
     Active Substance: PACLITAXEL
     Indication: HER2 positive breast cancer
     Dosage: 200MG D1, D8 INTRAVENOUS DRIP (IVGTT) FOR TWO CYCLES
     Route: 042
     Dates: start: 20210927, end: 202112
  11. PACLITAXEL [Suspect]
     Active Substance: PACLITAXEL
     Indication: Metastases to lymph nodes
     Dosage: 200MG D1, D8 INTRAVENOUS DRIP (IVGTT) FOR TWO CYCLES
     Route: 042
     Dates: start: 20210927, end: 202112
  12. TRASTUZUMAB [Suspect]
     Active Substance: TRASTUZUMAB
     Indication: HER2 positive breast cancer
     Dosage: 580MG FOR THE FIRST DOSE, FOLLOWED BY 430MG IV DRIP (IVGTT) D1?Q21D
     Route: 042
     Dates: start: 20200901, end: 202011
  13. TRASTUZUMAB [Suspect]
     Active Substance: TRASTUZUMAB
     Indication: Metastases to lymph nodes
     Dosage: 580MG FOR THE FIRST DOSE, FOLLOWED BY 430MG IV DRIP (IVGTT) D1?Q21D
     Route: 042
     Dates: start: 20200901, end: 202011
  14. TRASTUZUMAB [Suspect]
     Active Substance: TRASTUZUMAB
     Indication: HER2 positive breast cancer
     Dosage: 580MG FOR THE FIRST DOSE, FOLLOWED BY 430MG IV DRIP (IVGTT) D1?Q21D
     Route: 042
     Dates: start: 20200901, end: 202011
  15. TRASTUZUMAB [Suspect]
     Active Substance: TRASTUZUMAB
     Indication: Metastases to lymph nodes
     Dosage: 580MG FOR THE FIRST DOSE, FOLLOWED BY 430MG IV DRIP (IVGTT) D1?Q21D
     Route: 042
     Dates: start: 20200901, end: 202011
  16. TRASTUZUMAB [Suspect]
     Active Substance: TRASTUZUMAB
     Indication: HER2 positive breast cancer
     Dosage: 430MG IV DRIP (IVGTT) D1 Q21D FOR TWO CYCLES
     Route: 042
     Dates: start: 20210927, end: 202112
  17. TRASTUZUMAB [Suspect]
     Active Substance: TRASTUZUMAB
     Indication: Metastases to lymph nodes
     Dosage: 430MG IV DRIP (IVGTT) D1 Q21D FOR TWO CYCLES
     Route: 042
     Dates: start: 20210927, end: 202112
  18. TRASTUZUMAB [Suspect]
     Active Substance: TRASTUZUMAB
     Indication: HER2 positive breast cancer
     Dosage: 430MG IV DRIP (IVGTT) D1 Q21D WITH FOUR CYCLES
     Route: 042
     Dates: start: 20211227, end: 202203
  19. TRASTUZUMAB [Suspect]
     Active Substance: TRASTUZUMAB
     Indication: Metastases to lymph nodes
     Dosage: 430MG IV DRIP (IVGTT) D1 Q21D WITH FOUR CYCLES
     Route: 042
     Dates: start: 20211227, end: 202203
  20. PERTUZUMAB [Suspect]
     Active Substance: PERTUZUMAB
     Indication: HER2 positive breast cancer
     Dates: start: 202109, end: 202112
  21. PERTUZUMAB [Suspect]
     Active Substance: PERTUZUMAB
     Indication: HER2 positive breast cancer
     Dosage: INITIALLY 840MG, FOLLOWED BY 420MG IV DRIP (IVGTT) D1 FOR TWO CYCLES
     Route: 042
     Dates: start: 20200901, end: 202011
  22. PERTUZUMAB [Suspect]
     Active Substance: PERTUZUMAB
     Indication: Metastases to lymph nodes
     Dosage: INITIALLY 840MG, FOLLOWED BY 420MG IV DRIP (IVGTT) D1 FOR TWO CYCLES
     Route: 042
     Dates: start: 20200901, end: 202011
  23. PERTUZUMAB [Suspect]
     Active Substance: PERTUZUMAB
     Indication: HER2 positive breast cancer
     Dosage: INITIALLY 840MG, FOLLOWED BY 420MG IV DRIP (IVGTT) D1 FOR TWO CYCLES
     Route: 042
     Dates: start: 20200901, end: 202011
  24. PERTUZUMAB [Suspect]
     Active Substance: PERTUZUMAB
     Indication: Metastases to lymph nodes
     Dosage: INITIALLY 840MG, FOLLOWED BY 420MG IV DRIP (IVGTT) D1 FOR TWO CYCLES
     Route: 042
     Dates: start: 20200901, end: 202011
  25. PERTUZUMAB [Suspect]
     Active Substance: PERTUZUMAB
     Indication: HER2 positive breast cancer
     Dosage: 420MG IV DRIP (IVGTT) D1
     Route: 042
     Dates: start: 20210927, end: 202112
  26. PERTUZUMAB [Suspect]
     Active Substance: PERTUZUMAB
     Indication: Metastases to lymph nodes
     Dosage: 420MG IV DRIP (IVGTT) D1
     Route: 042
     Dates: start: 20210927, end: 202112
  27. PERTUZUMAB [Suspect]
     Active Substance: PERTUZUMAB
     Indication: HER2 positive breast cancer
     Dosage: 420MG IV DRIP (IVGTT) WITH FOUR CYCLES
     Route: 042
     Dates: start: 20211227, end: 202203
  28. PERTUZUMAB [Suspect]
     Active Substance: PERTUZUMAB
     Indication: Metastases to lymph nodes
     Dosage: 420MG IV DRIP (IVGTT) WITH FOUR CYCLES
     Route: 042
     Dates: start: 20211227, end: 202203
  29. DOCETAXEL [Suspect]
     Active Substance: DOCETAXEL\DOCETAXEL ANHYDROUS
     Indication: HER2 positive breast cancer
     Dosage: TWO CYCLES
     Dates: start: 202109, end: 202112
  30. DOCETAXEL [Suspect]
     Active Substance: DOCETAXEL\DOCETAXEL ANHYDROUS
     Indication: Metastases to lymph nodes
     Dosage: TWO CYCLES
     Dates: start: 202109, end: 202112
  31. PYROTINIB [Suspect]
     Active Substance: PYROTINIB
     Indication: HER2 positive breast cancer
     Dosage: 400MG QD PO WITH FOUR CYLCES?DAILY DOSE: 400 MILLIGRAM
     Route: 048
     Dates: start: 20211227, end: 202203
  32. PYROTINIB [Suspect]
     Active Substance: PYROTINIB
     Indication: Metastases to lymph nodes
     Dosage: 400MG QD PO WITH FOUR CYLCES?DAILY DOSE: 400 MILLIGRAM
     Route: 048
     Dates: start: 20211227, end: 202203

REACTIONS (6)
  - Myelosuppression [Unknown]
  - Tumour rupture [Unknown]
  - Hypoaesthesia [Unknown]
  - Nausea [Unknown]
  - Vomiting [Unknown]
  - Multiple-drug resistance [Unknown]
